FAERS Safety Report 25445111 (Version 1)
Quarter: 2025Q2

REPORT INFORMATION
  Report Type: Spontaneous
  Country: CO (occurrence: CO)
  Receive Date: 20250617
  Receipt Date: 20250617
  Transmission Date: 20250717
  Serious: Yes (Other)
  Sender: REGENERON
  Company Number: CO-BAYER-2025A077678

PATIENT
  Sex: Male

DRUGS (1)
  1. EYLEA [Suspect]
     Active Substance: AFLIBERCEPT
     Indication: Diabetic retinopathy
     Dosage: 40 MG, Q1MON, SOLUTION FOR INJECTION IN PRE-FILLED SYRINGE, 40MG/ML
     Route: 031

REACTIONS (2)
  - Arthritis infective [Recovering/Resolving]
  - Skin injury [Recovering/Resolving]

NARRATIVE: CASE EVENT DATE: 20250101
